FAERS Safety Report 15936338 (Version 5)
Quarter: 2019Q2

REPORT INFORMATION
  Report Type: Report from Study
  Country: KR (occurrence: KR)
  Receive Date: 20190208
  Receipt Date: 20190411
  Transmission Date: 20190711
  Serious: Yes (Death, Hospitalization, Other)
  Sender: FDA-Public Use
  Company Number: KR-BRISTOL-MYERS SQUIBB COMPANY-BMS-2017-092426

PATIENT
  Age: 72 Year
  Sex: Male
  Weight: 62.6 kg

DRUGS (2)
  1. NIVOLUMAB [Suspect]
     Active Substance: NIVOLUMAB
     Indication: PRODUCT USED FOR UNKNOWN INDICATION
     Dosage: 1 DF= 195 (UNITS NOS), Q2WK
     Route: 041
     Dates: start: 20170926, end: 20170926
  2. NIVOLUMAB [Suspect]
     Active Substance: NIVOLUMAB
     Indication: NON-SMALL CELL LUNG CANCER METASTATIC
     Dosage: UNK, Q2WK
     Route: 042
     Dates: start: 20170513

REACTIONS (8)
  - Toxic skin eruption [Recovered/Resolved]
  - Pneumonia [Not Recovered/Not Resolved]
  - Acute kidney injury [Not Recovered/Not Resolved]
  - Asthenia [Unknown]
  - Hypercalcaemia [Recovered/Resolved with Sequelae]
  - Blood pressure systolic decreased [Unknown]
  - Malignant neoplasm progression [Fatal]
  - Back pain [Not Recovered/Not Resolved]

NARRATIVE: CASE EVENT DATE: 20170927
